FAERS Safety Report 11908227 (Version 1)
Quarter: 2016Q1

REPORT INFORMATION
  Report Type: Spontaneous
  Country: US (occurrence: US)
  Receive Date: 20160111
  Receipt Date: 20160111
  Transmission Date: 20160526
  Serious: No
  Sender: FDA-Public Use
  Company Number: US-BAYER-2016-004243

PATIENT
  Age: 61 Year
  Sex: Female

DRUGS (2)
  1. CLIMARA [Suspect]
     Active Substance: ESTRADIOL
     Dosage: 0.025 MG, UNK
     Route: 062
  2. CLIMARA [Suspect]
     Active Substance: ESTRADIOL
     Dosage: 0.025 MG, UNK
     Route: 062
     Dates: start: 2003

REACTIONS (4)
  - Product adhesion issue [None]
  - Application site rash [Not Recovered/Not Resolved]
  - Product quality issue [None]
  - Wrong technique in product usage process [None]

NARRATIVE: CASE EVENT DATE: 20160102
